FAERS Safety Report 24789928 (Version 1)
Quarter: 2024Q4

REPORT INFORMATION
  Report Type: Spontaneous
  Country: US (occurrence: None)
  Receive Date: 20241230
  Receipt Date: 20241230
  Transmission Date: 20250115
  Serious: Yes (Disabling)
  Sender: Public
  Company Number: None

PATIENT
  Sex: Female
  Weight: 74.25 kg

DRUGS (5)
  1. MONTELUKAST SODIUM [Suspect]
     Active Substance: MONTELUKAST\MONTELUKAST SODIUM
     Indication: Asthma
     Dates: start: 20240601, end: 20241115
  2. ARMOUR THYROID [Concomitant]
     Active Substance: THYROID, PORCINE
  3. VITAMINS [Concomitant]
     Active Substance: VITAMINS
  4. IRON [Concomitant]
     Active Substance: IRON
  5. STOOL SOFTENER (DOCUSATE) [Concomitant]
     Active Substance: DOCUSATE

REACTIONS (7)
  - Obsessive-compulsive disorder [None]
  - Anxiety [None]
  - Depression [None]
  - Aggression [None]
  - Anger [None]
  - Lactose intolerance [None]
  - Personality change [None]
